FAERS Safety Report 13203240 (Version 2)
Quarter: 2017Q1

REPORT INFORMATION
  Report Type: Spontaneous
  Country: US (occurrence: US)
  Receive Date: 20170208
  Receipt Date: 20170224
  Transmission Date: 20170428
  Serious: Yes (Hospitalization, Other)
  Sender: FDA-Public Use
  Company Number: US-ASTRAZENECA-2017SE12156

PATIENT
  Age: 24274 Day
  Sex: Female
  Weight: 61.8 kg

DRUGS (10)
  1. ASPIRIN. [Concomitant]
     Active Substance: ASPIRIN
     Route: 048
  2. LISINOPRIL HCTZ [Suspect]
     Active Substance: HYDROCHLOROTHIAZIDE\LISINOPRIL
     Indication: BLOOD PRESSURE ABNORMAL
     Dosage: 20 MG/ 12.5 MG, DAILY
     Route: 048
  3. BIOTIN [Concomitant]
     Active Substance: BIOTIN
     Route: 048
  4. VITAMIN B12 [Concomitant]
     Active Substance: CYANOCOBALAMIN
     Route: 048
  5. LISINOPRIL. [Suspect]
     Active Substance: LISINOPRIL
     Indication: HYPERTENSION
     Route: 048
  6. LYNPARZA [Suspect]
     Active Substance: OLAPARIB
     Indication: OVARIAN CANCER
     Route: 048
     Dates: start: 201610
  7. CENTRUM [Concomitant]
     Active Substance: VITAMINS
     Dosage: 1 TABLET, EVERY OTHER DAY AT BED TIME
     Route: 048
  8. TYLENOL EXTRA STRNEGTH [Concomitant]
     Dosage: AS REQUIRED
  9. REGLAN [Concomitant]
     Active Substance: METOCLOPRAMIDE HYDROCHLORIDE
     Indication: NAUSEA
     Dosage: AS REQUIRED
  10. ATORVASTATIN [Concomitant]
     Active Substance: ATORVASTATIN
     Route: 048

REACTIONS (12)
  - Cerebellar infarction [Unknown]
  - Hyperlipidaemia [Unknown]
  - Acute kidney injury [Unknown]
  - Aortic calcification [Unknown]
  - Hyperhidrosis [Recovered/Resolved]
  - Nausea [Recovering/Resolving]
  - Anaemia [Unknown]
  - Cerebrovascular accident [Recovering/Resolving]
  - Left ventricular hypertrophy [Unknown]
  - Aortic arteriosclerosis [Unknown]
  - Vomiting [Recovering/Resolving]
  - Fatigue [Unknown]

NARRATIVE: CASE EVENT DATE: 20170126
